FAERS Safety Report 19747346 (Version 2)
Quarter: 2021Q4

REPORT INFORMATION
  Report Type: Report from Study
  Country: AR (occurrence: AR)
  Receive Date: 20210826
  Receipt Date: 20211129
  Transmission Date: 20220304
  Serious: Yes (Hospitalization, Other)
  Sender: FDA-Public Use
  Company Number: AR-ABBVIE-21K-007-3791144-00

PATIENT
  Age: 6 Year
  Sex: Male
  Weight: 32 kg

DRUGS (3)
  1. HUMIRA [Suspect]
     Active Substance: ADALIMUMAB
     Indication: Uveitis
     Route: 058
     Dates: start: 20200518
  2. HUMIRA [Suspect]
     Active Substance: ADALIMUMAB
     Indication: Uveitis
     Route: 058
  3. HUMIRA [Suspect]
     Active Substance: ADALIMUMAB
     Route: 058

REACTIONS (18)
  - Cataract [Recovered/Resolved]
  - Cataract [Unknown]
  - Visual impairment [Unknown]
  - Intraocular pressure increased [Recovering/Resolving]
  - Nasopharyngitis [Recovering/Resolving]
  - Eye disorder [Not Recovered/Not Resolved]
  - Deposit eye [Unknown]
  - Eye inflammation [Unknown]
  - Eye discharge [Unknown]
  - Product outer packaging issue [Unknown]
  - Product administration error [Unknown]
  - Hyperaesthesia eye [Unknown]
  - Secretion discharge [Unknown]
  - Post procedural complication [Recovering/Resolving]
  - Intraocular pressure increased [Not Recovered/Not Resolved]
  - Cataract [Not Recovered/Not Resolved]
  - Eye inflammation [Not Recovered/Not Resolved]
  - Weight increased [Unknown]

NARRATIVE: CASE EVENT DATE: 20210101
